FAERS Safety Report 8078119-6 (Version None)
Quarter: 2012Q1

REPORT INFORMATION
  Report Type: 
  Country: None (occurrence: None)
  Receive Date: 20120127
  Receipt Date: 20110318
  Transmission Date: 20120608
  Serious: No
  Sender: FDA-Public Use
  Company Number: US-ABBOTT-10P-163-0688386-00

PATIENT
  Sex: Female
  Weight: 61.744 kg

DRUGS (1)
  1. HUMIRA [Suspect]
     Indication: PSORIATIC ARTHROPATHY
     Dates: start: 20070501, end: 20101101

REACTIONS (3)
  - ANGIOEDEMA [None]
  - SWELLING [None]
  - OEDEMA PERIPHERAL [None]
